FAERS Safety Report 11150581 (Version 4)
Quarter: 2015Q3

REPORT INFORMATION
  Report Type: Spontaneous
  Country: JP (occurrence: JP)
  Receive Date: 20150601
  Receipt Date: 20150803
  Transmission Date: 20151125
  Serious: Yes (Death, Life-Threatening)
  Sender: FDA-Public Use
  Company Number: JP-UCBSA-2015017172

PATIENT
  Age: 63 Year
  Sex: Female
  Weight: 53 kg

DRUGS (4)
  1. ALTAT [Concomitant]
     Indication: PRODUCT USED FOR UNKNOWN INDICATION
     Dosage: 150 MG; DAILY
     Route: 048
  2. ISCOTIN [Concomitant]
     Active Substance: ISONIAZID
     Indication: PRODUCT USED FOR UNKNOWN INDICATION
     Dosage: 200 MG DAILY
     Route: 048
     Dates: start: 201108
  3. CIMZIA [Suspect]
     Active Substance: CERTOLIZUMAB PEGOL
     Indication: RHEUMATOID ARTHRITIS
     Dosage: 400 MG, EV 4 WEEKS
     Route: 058
     Dates: start: 20130911, end: 20150520
  4. METHOTREXATE [Concomitant]
     Active Substance: METHOTREXATE
     Indication: PRODUCT USED FOR UNKNOWN INDICATION
     Dosage: UNK
     Route: 048
     Dates: start: 20070604

REACTIONS (2)
  - Aortic aneurysm rupture [Fatal]
  - Embolic stroke [Unknown]

NARRATIVE: CASE EVENT DATE: 20150520
